FAERS Safety Report 18596902 (Version 1)
Quarter: 2020Q4

REPORT INFORMATION
  Report Type: Spontaneous
  Country: DE (occurrence: DE)
  Receive Date: 20201209
  Receipt Date: 20201209
  Transmission Date: 20210114
  Serious: Yes (Life-Threatening)
  Sender: FDA-Public Use
  Company Number: DE-MYLANLABS-2020M1100157

PATIENT

DRUGS (14)
  1. ACICLOVIR [Suspect]
     Active Substance: ACYCLOVIR
     Indication: PRODUCT USED FOR UNKNOWN INDICATION
     Dosage: UNK, CYCLE
  2. IFOSFAMIDE. [Suspect]
     Active Substance: IFOSFAMIDE
     Indication: PRODUCT USED FOR UNKNOWN INDICATION
     Dosage: 800 MILLIGRAM/SQ. METER, QH (DAY 2-4, CYCLE 5 (1 CYCLE = 2 WEEKS))
     Route: 042
  3. ARA-C [Suspect]
     Active Substance: CYTARABINE
     Dosage: 10 MILLIGRAM, Q3H (10 MG, DAY 6, CYCLE 4+6 (1 CYCLE = 3 WEEKS))
  4. IFOSFAMIDE. [Suspect]
     Active Substance: IFOSFAMIDE
     Dosage: 800 MILLIGRAM/SQ. METER (800 MG/M2, DAY 2-4, CYCLE 1-3 (1 CYCLE = 2 WEEKS))
     Route: 042
  5. ARA-C [Suspect]
     Active Substance: CYTARABINE
     Indication: PRODUCT USED FOR UNKNOWN INDICATION
     Dosage: 10 MILLIGRAM, Q3H (10 MG, DAY 5, CYCLE 5 (1 CYCLE = 2 WEEKS))
  6. SULFAMETHOXAZOLE AND TRIMETHOPRIM [Suspect]
     Active Substance: SULFAMETHOXAZOLE\TRIMETHOPRIM
     Indication: PRODUCT USED FOR UNKNOWN INDICATION
     Dosage: UNK, CYCLE
  7. METHOTREXATE. [Suspect]
     Active Substance: METHOTREXATE
     Indication: CENTRAL NERVOUS SYSTEM LYMPHOMA
     Dosage: 4000 MILLIGRAM/SQ. METER, Q4H (DAY 1, CYCLE 1-3 (1 CYCLE = 2 WEEKS))
     Route: 042
  8. ARA-C [Suspect]
     Active Substance: CYTARABINE
     Indication: CENTRAL NERVOUS SYSTEM LYMPHOMA
     Dosage: 3000 MILLIGRAM/SQ. METER, Q3H, DAY 1-2, CYCLE 4+6 (1 CYCLE = 3 WEEKS)
     Route: 042
  9. PREDNISOLONE. [Suspect]
     Active Substance: PREDNISOLONE
     Dosage: 3 MILLIGRAM (3 MG, DAY 3-5, CYCLE 4+6 (1 CYCLE = 3 WEEKS), ICV/INTRACEREBROVENTRICULAR ROUTE)
  10. METHOTREXATE. [Suspect]
     Active Substance: METHOTREXATE
     Indication: PRODUCT USED FOR UNKNOWN INDICATION
     Dosage: 2.5 MILLIGRAM, DAY 3-5, CYCLE 4+6 (1 CYCLE = 3 WEEKS)
  11. METHOTREXATE. [Suspect]
     Active Substance: METHOTREXATE
     Dosage: 2.5 MILLIGRAM (2.5 MG, DAY 2-4, CYCLE 5 (1 CYCLE = 2 WEEKS))
  12. METHOTREXATE. [Suspect]
     Active Substance: METHOTREXATE
     Dosage: 4000 MILLIGRAM/SQ. METER (4000 MG/M2, DAY 1, CYCLE 5 (1 CYCLE = 2 WEEKS))
     Route: 042
  13. PREDNISOLONE. [Suspect]
     Active Substance: PREDNISOLONE
     Indication: PRODUCT USED FOR UNKNOWN INDICATION
     Dosage: 3 MILLIGRAM, DAY 2-4, 5 (1 CYCLE = 2 WEEKS), ICV/INTRACEREBROVENTRICULAR ROUTE
  14. RITUXIMAB. [Suspect]
     Active Substance: RITUXIMAB
     Indication: CENTRAL NERVOUS SYSTEM LYMPHOMA
     Dosage: 375 MILLIGRAM/SQ. METER, DAY 0, CYCLE 1-3 (1 CYCLE = 2 WEEKS)
     Route: 042

REACTIONS (1)
  - Thrombosis [Unknown]
